FAERS Safety Report 22045654 (Version 2)
Quarter: 2023Q1

REPORT INFORMATION
  Report Type: Spontaneous
  Country: US (occurrence: US)
  Receive Date: 20230228
  Receipt Date: 20230331
  Transmission Date: 20230418
  Serious: No
  Sender: FDA-Public Use
  Company Number: US-PFIZER INC-202300080967

PATIENT
  Age: 66 Year
  Sex: Female
  Weight: 88.45 kg

DRUGS (27)
  1. PAXLOVID [Suspect]
     Active Substance: NIRMATRELVIR\RITONAVIR
     Indication: COVID-19 treatment
     Dosage: [PF-07321332 300 MG]/[RITONAVIR 100 MG], 2X/DAY
     Route: 048
     Dates: start: 20230220
  2. MELOXICAM [Concomitant]
     Active Substance: MELOXICAM
     Indication: Pain
     Dosage: 7.5 MG, DAILY
     Route: 048
     Dates: start: 20230130, end: 20230219
  3. ORPHENADRINE CITRATE [Concomitant]
     Active Substance: ORPHENADRINE CITRATE
     Indication: Muscle spasms
     Dosage: 1 DF, 2X/DAY  AS NEEDED
     Route: 048
     Dates: start: 20230131, end: 20230219
  4. NOVOLOG [Concomitant]
     Active Substance: INSULIN ASPART
     Indication: Type 1 diabetes mellitus
     Dosage: 50 IU, DAILY
  5. TOLTERODINE [Concomitant]
     Active Substance: TOLTERODINE
     Dosage: 1 DF, DAILY
     Route: 048
  6. TOLTERODINE [Concomitant]
     Active Substance: TOLTERODINE
     Dosage: 1 DF, ALTERNATE DAY
  7. APPLE CIDER VINEGAR [Concomitant]
     Active Substance: APPLE CIDER VINEGAR
     Indication: Vitamin supplementation
     Dosage: UNK, DAILY
  8. ASCORBIC ACID [Concomitant]
     Active Substance: ASCORBIC ACID
     Indication: Vitamin supplementation
     Dosage: 1 DF, DAILY
     Route: 048
  9. ASPIRIN [Concomitant]
     Active Substance: ASPIRIN
     Dosage: 1 DF, DAILY
     Route: 048
  10. VITAMIN D NOS [Concomitant]
     Active Substance: VITAMIN D NOS
     Indication: Vitamin supplementation
     Dosage: 1 DF, DAILY
  11. VITAMIN D NOS [Concomitant]
     Active Substance: VITAMIN D NOS
     Dosage: 2 DF, DAILY TO BOOST HER A LITTLE BIT
  12. VITAMIN C [Concomitant]
     Active Substance: ASCORBIC ACID
     Indication: Vitamin supplementation
     Dosage: 1 DF, DAILY
  13. VITAMIN C [Concomitant]
     Active Substance: ASCORBIC ACID
     Dosage: 2 DF, DAILY IF SICK
  14. FOLIC ACID [Concomitant]
     Active Substance: FOLIC ACID
     Indication: Vitamin supplementation
     Dosage: 1 DF, DAILY
  15. LORATADINE [Concomitant]
     Active Substance: LORATADINE
     Dosage: 10 MG, DAILY
  16. COZAAR [Concomitant]
     Active Substance: LOSARTAN POTASSIUM
     Dosage: 1 DF, DAILY
  17. FISH OIL\OMEGA-3 FATTY ACIDS [Concomitant]
     Active Substance: FISH OIL\OMEGA-3 FATTY ACIDS
     Dosage: 1 DF, DAILY
  18. MIRALAX [Concomitant]
     Active Substance: POLYETHYLENE GLYCOL 3350
     Dosage: TRY TO TAKE A LITTLE BIT A DAY
  19. CYANOCOBALAMIN [Concomitant]
     Active Substance: CYANOCOBALAMIN
     Indication: Vitamin supplementation
     Dosage: 1 DF, 1X/DAY
  20. ZINC [Concomitant]
     Active Substance: ZINC
     Indication: Vitamin supplementation
     Dosage: 1 DF, DAILY AT LEAST
  21. ZINC [Concomitant]
     Active Substance: ZINC
     Dosage: 2 DF, DAILY SOMETIMES
  22. FLONASE [Concomitant]
     Active Substance: FLUTICASONE PROPIONATE
     Dosage: UNK
  23. NAPROXEN [Concomitant]
     Active Substance: NAPROXEN
     Dosage: UNK
  24. HERBALS\TURMERIC [Concomitant]
     Active Substance: HERBALS\TURMERIC
     Dosage: UNK
  25. PREDNISONE [Concomitant]
     Active Substance: PREDNISONE
     Dosage: 2 DF, DAILY START WITH, 20MG
     Route: 048
     Dates: start: 20230220
  26. PREDNISONE [Concomitant]
     Active Substance: PREDNISONE
     Dosage: DOWN TO 1 DF, DAILY
  27. PREDNISONE [Concomitant]
     Active Substance: PREDNISONE
     Dosage: CUT THE NEXT ONE IN HALF FOR THE NEXT 2 DAYS

REACTIONS (1)
  - Incorrect dose administered [Unknown]
